FAERS Safety Report 8836945 (Version 1)
Quarter: 2012Q4

REPORT INFORMATION
  Report Type: Spontaneous
  Country: US (occurrence: None)
  Receive Date: 20121010
  Receipt Date: 20121010
  Transmission Date: 20130627
  Serious: Yes (Other)
  Sender: FDA-Public Use
  Company Number: 2012AP003289

PATIENT
  Age: 46 Year
  Sex: Female

DRUGS (3)
  1. LOSARTAN POTASSIUM [Suspect]
  2. METFORMIN\SITAGLIPTIN [Suspect]
  3. PREDNISONE [Suspect]

REACTIONS (7)
  - Polyuria [None]
  - Polydipsia [None]
  - Angioedema [None]
  - Drug interaction [None]
  - Pruritus [None]
  - Paraesthesia oral [None]
  - Lip oedema [None]
